FAERS Safety Report 13561107 (Version 4)
Quarter: 2017Q2

REPORT INFORMATION
  Report Type: Spontaneous
  Country: PT (occurrence: PT)
  Receive Date: 20170518
  Receipt Date: 20170614
  Transmission Date: 20170830
  Serious: Yes (Other)
  Sender: FDA-Public Use
  Company Number: PT-ASTRAZENECA-2017SE51948

PATIENT
  Age: 734 Month
  Sex: Male
  Weight: 65 kg

DRUGS (10)
  1. ACETYLSALICYLIC ACID [Concomitant]
     Active Substance: ASPIRIN
     Indication: INFARCTION
     Route: 065
     Dates: start: 20170228
  2. NITROGLICERINA [Concomitant]
     Active Substance: NITROGLYCERIN
     Indication: ANGINA PECTORIS
     Dosage: 10.0MG UNKNOWN
     Route: 062
     Dates: end: 20170406
  3. NORVIR [Interacting]
     Active Substance: RITONAVIR
     Indication: HIV INFECTION
     Route: 048
     Dates: start: 20130807, end: 20170421
  4. KIVEXA [Concomitant]
     Active Substance: ABACAVIR SULFATE\LAMIVUDINE
     Indication: HIV INFECTION
     Route: 065
     Dates: start: 20130607, end: 20170421
  5. ATORVASTATIN [Concomitant]
     Active Substance: ATORVASTATIN
     Indication: DYSLIPIDAEMIA
     Route: 065
     Dates: start: 2015
  6. PERINDOPRIL [Concomitant]
     Active Substance: PERINDOPRIL
     Indication: INFARCTION
     Route: 065
     Dates: start: 20170228
  7. REYATAZ [Interacting]
     Active Substance: ATAZANAVIR SULFATE
     Indication: HIV INFECTION
     Route: 048
     Dates: start: 20130707, end: 20170421
  8. BISOPROLOL [Concomitant]
     Active Substance: BISOPROLOL
     Indication: INFARCTION
     Route: 065
     Dates: start: 20170228
  9. SUCRALFATE. [Concomitant]
     Active Substance: SUCRALFATE
     Indication: PROPHYLAXIS AGAINST GASTROINTESTINAL ULCER
     Route: 065
  10. BRILIQUE [Suspect]
     Active Substance: TICAGRELOR
     Indication: ACUTE MYOCARDIAL INFARCTION
     Route: 048
     Dates: start: 20170228

REACTIONS (5)
  - Dry mouth [Recovered/Resolved]
  - Fatigue [Recovered/Resolved]
  - Asthenia [Recovered/Resolved]
  - Nausea [Recovered/Resolved]
  - Drug interaction [Unknown]

NARRATIVE: CASE EVENT DATE: 201703
